FAERS Safety Report 8222145-0 (Version None)
Quarter: 2012Q1

REPORT INFORMATION
  Report Type: 
  Country: None (occurrence: None)
  Receive Date: 20120320
  Receipt Date: 20120309
  Transmission Date: 20120608
  Serious: Yes (Other)
  Sender: FDA-Public Use
  Company Number: MX-JNJFOC-20120308202

PATIENT
  Sex: Female
  Weight: 100 kg

DRUGS (9)
  1. CLONAZEPAM [Concomitant]
     Route: 065
  2. RISPERDAL [Suspect]
     Indication: PRODUCT USED FOR UNKNOWN INDICATION
     Route: 065
     Dates: start: 20120101
  3. METFORMIN HCL [Concomitant]
     Route: 065
  4. TOPIRAMATE [Concomitant]
     Indication: CONVULSION
     Route: 048
     Dates: start: 20100401
  5. MAGNESIUM VALPROATE [Concomitant]
     Route: 065
  6. ORATANE [Concomitant]
     Route: 065
  7. RISPERDAL [Suspect]
     Route: 065
     Dates: start: 20110201
  8. BEZAFIBRATE [Concomitant]
     Route: 065
  9. SEROQUEL [Concomitant]
     Route: 065

REACTIONS (4)
  - WEIGHT INCREASED [None]
  - HALLUCINATION [None]
  - DYSKINESIA [None]
  - MOVEMENT DISORDER [None]
